FAERS Safety Report 20146620 (Version 1)
Quarter: 2021Q4

REPORT INFORMATION
  Report Type: Spontaneous
  Country: FI (occurrence: FI)
  Receive Date: 20211203
  Receipt Date: 20211203
  Transmission Date: 20220303
  Serious: Yes (Other)
  Sender: FDA-Public Use
  Company Number: FI-BAYER-2021A257414

PATIENT
  Age: 73 Year
  Sex: Female

DRUGS (3)
  1. NEXAVAR [Suspect]
     Active Substance: SORAFENIB
     Indication: Hepatocellular carcinoma
     Dosage: 400 MG, QD
  2. NEXAVAR [Suspect]
     Active Substance: SORAFENIB
     Indication: Hepatocellular carcinoma
     Dosage: 400 MG, BID
  3. NEXAVAR [Suspect]
     Active Substance: SORAFENIB
     Indication: Hepatocellular carcinoma
     Dosage: 400 MG, QD

REACTIONS (9)
  - Hepatocellular carcinoma [None]
  - Hepatic cirrhosis [None]
  - General physical health deterioration [None]
  - Fatigue [Not Recovered/Not Resolved]
  - Diarrhoea [None]
  - Nausea [None]
  - Palmar-plantar erythrodysaesthesia syndrome [None]
  - Off label use [None]
  - Intentional product misuse [None]
